FAERS Safety Report 7754575-5 (Version None)
Quarter: 2011Q3

REPORT INFORMATION
  Report Type: 
  Country: None (occurrence: None)
  Receive Date: 20110915
  Receipt Date: 20110912
  Transmission Date: 20111222
  Serious: Yes (Life-Threatening, Hospitalization)
  Sender: FDA-Public Use
  Company Number: US-B.I. PHARMACEUTICALS,INC./RIDGEFIELD-2011-BP-19285BP

PATIENT
  Age: 83 Year
  Sex: Female

DRUGS (11)
  1. PEPCID [Concomitant]
     Dosage: 20 MG
  2. AMLODIPINE [Concomitant]
     Dosage: 5 MG
  3. PRADAXA [Suspect]
     Indication: CEREBROVASCULAR ACCIDENT PROPHYLAXIS
  4. AMIODARONE HCL [Concomitant]
     Dosage: 400 MG
     Dates: start: 20110701
  5. ENALAPRIL MALEATE [Concomitant]
     Dosage: 5 MG
  6. PLAVIX [Concomitant]
     Dosage: 75 MG
  7. MECLIZINE [Concomitant]
  8. CRESTOR [Concomitant]
     Dosage: 5 MG
  9. NORCO [Concomitant]
  10. ATENOLOL [Concomitant]
     Dosage: 25 MG
  11. PRADAXA [Suspect]
     Indication: ATRIAL FIBRILLATION
     Dosage: 300 MG
     Route: 048
     Dates: start: 20110629, end: 20110715

REACTIONS (2)
  - HAEMORRHAGIC STROKE [None]
  - SUBDURAL HAEMATOMA [None]
